FAERS Safety Report 9481846 (Version 1)
Quarter: 2013Q3

REPORT INFORMATION
  Report Type: Report from Study
  Country: GB (occurrence: GB)
  Receive Date: 20130828
  Receipt Date: 20130828
  Transmission Date: 20140515
  Serious: Yes (Hospitalization)
  Sender: FDA-Public Use
  Company Number: GB-ROCHE-1264431

PATIENT
  Age: 70 Year
  Sex: Male
  Weight: 92.9 kg

DRUGS (13)
  1. BEVACIZUMAB [Suspect]
     Indication: GASTRIC CANCER
     Dosage: ACTUAL DOSE AT MOST RECENT ADMINISTRATION: 700 MG?DATE OF MOST RECENT ADMINISTRATION: 03/JUL/2013
     Route: 042
     Dates: start: 20130522
  2. CAPECITABINE [Suspect]
     Indication: GASTRIC CANCER
     Dosage: ACTUAL DOSE AT MOST RECENT ADMINISTRATION: 2500 MG?DATE OF MOST RECENT ADMINISTRATION: 07/JUL/2013
     Route: 048
     Dates: start: 20130522
  3. EPIRUBICIN [Suspect]
     Indication: GASTRIC CANCER
     Dosage: ACTUAL DOSE AT MOST RECENT ADMINISTRATION: 104 MG?DATE OF MOST RECENT ADMINISTRATION: 03/JUL/2013
     Route: 042
     Dates: start: 20130522
  4. CISPLATIN [Suspect]
     Indication: GASTRIC CANCER
     Dosage: ACTUAL DOSE AT MOST RECENT ADMINISTRATION: 125 MG?DATE OF MOST RECENT ADMINISTRATION: 03/JUL/2013
     Route: 042
     Dates: start: 20130522
  5. BISOPROLOL [Concomitant]
     Route: 048
     Dates: start: 201304
  6. CLOPIDOGREL [Concomitant]
     Route: 048
     Dates: start: 201303
  7. ATORVASTATIN [Concomitant]
     Route: 048
     Dates: start: 2001
  8. TRANDOLAPRIL [Concomitant]
     Route: 048
     Dates: start: 2001
  9. METFORMIN [Concomitant]
     Route: 048
     Dates: start: 2009
  10. LANSOPRAZOLE [Concomitant]
     Dosage: INCREASED FROM ONCE A DAY
     Route: 048
     Dates: start: 20130713
  11. ISOSORBIDE MONONITRATE [Concomitant]
     Route: 048
     Dates: start: 2001
  12. GLIPIZIDE [Concomitant]
     Route: 048
     Dates: start: 2009
  13. BIOTENE MOUTHWASH [Concomitant]
     Route: 048
     Dates: start: 20130709

REACTIONS (1)
  - Dysphagia [Recovered/Resolved]
